FAERS Safety Report 7884318-6 (Version None)
Quarter: 2011Q4

REPORT INFORMATION
  Report Type: 
  Country: None (occurrence: None)
  Receive Date: 20111102
  Receipt Date: 20111027
  Transmission Date: 20120403
  Serious: Yes (Life-Threatening, Disabling)
  Sender: FDA-Public Use
  Company Number: JP-ROCHE-1008418

PATIENT
  Age: 77 Year
  Sex: Female

DRUGS (21)
  1. RIMATIL [Concomitant]
     Indication: RHEUMATOID ARTHRITIS
     Route: 048
  2. LOXOPROFEN [Concomitant]
     Route: 048
  3. FOLIC ACID [Concomitant]
     Indication: PROPHYLAXIS
     Route: 048
     Dates: start: 20091008, end: 20100722
  4. AMLODIPINE [Concomitant]
     Route: 048
     Dates: end: 20100722
  5. PRAVASTATIN [Concomitant]
     Indication: HYPERLIPIDAEMIA
     Route: 048
     Dates: start: 20091008, end: 20101007
  6. OLOPATADINE HCL [Concomitant]
     Indication: RHINITIS ALLERGIC
     Route: 048
     Dates: start: 20081105
  7. MUCOSTA [Concomitant]
     Indication: GASTROOESOPHAGEAL REFLUX DISEASE
     Route: 048
  8. MUCOSTA [Concomitant]
     Route: 048
  9. ALLEGRA [Concomitant]
     Indication: RHINITIS ALLERGIC
     Dosage: DOSAGE IS UNCERTAIN.
     Route: 048
     Dates: start: 20091008, end: 20100701
  10. PREDNISOLONE [Concomitant]
     Indication: RHEUMATOID ARTHRITIS
     Route: 048
     Dates: start: 20100730, end: 20101007
  11. ACTEMRA [Suspect]
     Indication: RHEUMATOID ARTHRITIS
     Route: 041
     Dates: start: 20081008, end: 20100617
  12. METHOTREXATE [Suspect]
     Indication: RHEUMATOID ARTHRITIS
     Route: 048
     Dates: end: 20100722
  13. ONEALFA [Concomitant]
     Indication: OSTEOPOROSIS PROPHYLAXIS
     Route: 048
     Dates: start: 20100805, end: 20101007
  14. LOXOPROFEN [Concomitant]
     Indication: RHEUMATOID ARTHRITIS
     Route: 048
  15. AMLODIPINE [Concomitant]
     Indication: ANGINA PECTORIS
     Route: 048
  16. BASEN [Concomitant]
     Indication: DIABETES MELLITUS
     Route: 048
     Dates: end: 20100722
  17. CANDESARTAN CILEXETIL [Concomitant]
     Indication: HYPERTENSION
     Route: 048
  18. ASPIRIN [Concomitant]
     Indication: ANGINA PECTORIS
     Route: 048
  19. LIPITOR [Concomitant]
     Indication: HYPERLIPIDAEMIA
     Route: 048
  20. RIMATIL [Concomitant]
     Route: 048
     Dates: start: 20091008, end: 20100722
  21. OMEPRAZOLE [Concomitant]
     Indication: GASTROOESOPHAGEAL REFLUX DISEASE
     Route: 048

REACTIONS (9)
  - HEAT ILLNESS [None]
  - ESCHERICHIA TEST POSITIVE [None]
  - ACTIVITIES OF DAILY LIVING IMPAIRED [None]
  - SEPSIS [None]
  - DYSSTASIA [None]
  - DEHYDRATION [None]
  - URINARY TRACT INFECTION [None]
  - INFECTIVE SPONDYLITIS [None]
  - SPINAL COMPRESSION FRACTURE [None]
